FAERS Safety Report 19415112 (Version 2)
Quarter: 2021Q2

REPORT INFORMATION
  Report Type: Spontaneous
  Country: JP (occurrence: JP)
  Receive Date: 20210615
  Receipt Date: 20210622
  Transmission Date: 20210717
  Serious: Yes (Death)
  Sender: FDA-Public Use
  Company Number: JP-TEVA-202106_00011828

PATIENT
  Age: 43 Year
  Sex: Female
  Weight: 75 kg

DRUGS (7)
  1. CERCINE [Suspect]
     Active Substance: DIAZEPAM
     Indication: HYPERVENTILATION
     Dosage: 5 MILLIGRAM DAILY;
     Route: 042
     Dates: start: 20180925, end: 20180925
  2. SERENACE [Suspect]
     Active Substance: HALOPERIDOL
     Indication: DYSPNOEA
  3. BISONO [Suspect]
     Active Substance: BISOPROLOL
     Indication: BLOOD PRESSURE INCREASED
     Dosage: 80 MILLIGRAM DAILY;
     Route: 062
     Dates: start: 20180925, end: 20180925
  4. BISONO [Suspect]
     Active Substance: BISOPROLOL
     Indication: PALPITATIONS
  5. SOLDEM 3A [Concomitant]
     Active Substance: CARBOHYDRATES\POTASSIUM CHLORIDE\SODIUM CHLORIDE\SODIUM LACTATE
     Route: 041
     Dates: start: 20180925, end: 20180925
  6. CERCINE [Suspect]
     Active Substance: DIAZEPAM
     Indication: RESTLESSNESS
  7. SERENACE [Suspect]
     Active Substance: HALOPERIDOL
     Indication: PALPITATIONS
     Dosage: 5 MILLIGRAM DAILY;
     Route: 042
     Dates: start: 20180925, end: 20180925

REACTIONS (3)
  - Depressed level of consciousness [Fatal]
  - Cardiac arrest [Fatal]
  - Bradycardia [Fatal]

NARRATIVE: CASE EVENT DATE: 20180926
